FAERS Safety Report 20269187 (Version 1)
Quarter: 2022Q1

REPORT INFORMATION
  Report Type: Spontaneous
  Country: DE (occurrence: DE)
  Receive Date: 20220101
  Receipt Date: 20220101
  Transmission Date: 20220423
  Serious: Yes (Death, Other)
  Sender: FDA-Public Use
  Company Number: DE-PIRAMAL ENTERPRISES LIMITED-2021-PEL-000791

PATIENT
  Age: 73 Year
  Sex: Female
  Weight: 81.2 kg

DRUGS (12)
  1. FENTANYL [Suspect]
     Active Substance: FENTANYL
     Indication: Product used for unknown indication
     Dosage: 25 MILLIGRAM (EVERY 3 DAYS)
     Route: 065
     Dates: start: 201407, end: 201505
  2. FENTANYL CITRATE [Suspect]
     Active Substance: FENTANYL CITRATE
     Indication: Product used for unknown indication
     Dosage: 25 MILLIGRAM (EVERY 3 DAYS)
     Route: 065
     Dates: start: 201407, end: 201505
  3. XARELTO [Suspect]
     Active Substance: RIVAROXABAN
     Indication: Product used for unknown indication
     Dosage: 15 MILLIGRAM (1 - 0 - 0)
     Route: 065
     Dates: start: 201403, end: 201505
  4. ASPIRIN [Suspect]
     Active Substance: ASPIRIN
     Indication: Product used for unknown indication
     Dosage: 100 MILLIGRAM (1-0-0)
     Route: 065
     Dates: start: 201308, end: 201505
  5. SIMVASTATIN [Suspect]
     Active Substance: SIMVASTATIN
     Indication: Product used for unknown indication
     Dosage: 40 MILLIGRAM (0 - 0 - 1)
     Route: 065
     Dates: start: 201401, end: 201505
  6. PANTOPRAZOLE [Suspect]
     Active Substance: PANTOPRAZOLE
     Indication: Product used for unknown indication
     Dosage: 40 MILLIGRAM (1- 0 - 0)
     Route: 065
     Dates: start: 201403, end: 201505
  7. ACTRAPHANE [Suspect]
     Active Substance: INSULIN HUMAN
     Indication: Type 2 diabetes mellitus
     Dosage: 18-8
     Route: 065
     Dates: start: 201401, end: 201505
  8. GABAPENTIN [Suspect]
     Active Substance: GABAPENTIN
     Indication: Product used for unknown indication
     Dosage: 300 MILLIGRAM (1 - 0 - 1)
     Route: 065
     Dates: start: 201403, end: 201505
  9. RAMIPRIL [Suspect]
     Active Substance: RAMIPRIL
     Indication: Product used for unknown indication
     Dosage: 5 MILLIGRAM (1 - 0 - 1)
     Route: 065
     Dates: start: 201308, end: 201505
  10. BACLOFEN [Suspect]
     Active Substance: BACLOFEN
     Indication: Product used for unknown indication
     Dosage: 25 MILLIGRAM TABLET (25MG 1 - 0.5 - 1)
     Route: 065
     Dates: start: 201404, end: 201505
  11. AMLODIPINE [Suspect]
     Active Substance: AMLODIPINE BESYLATE
     Indication: Product used for unknown indication
     Dosage: 0.5 DOSAGE FORM (0.5-0-0.5)
     Route: 065
     Dates: start: 201309, end: 201505
  12. TORSEMIDE [Suspect]
     Active Substance: TORSEMIDE
     Indication: Product used for unknown indication
     Dosage: 10 MILLIGRAM (1 - 0 - 0)
     Route: 065
     Dates: start: 201310, end: 201505

REACTIONS (8)
  - Sepsis [Fatal]
  - Lactic acidosis [Fatal]
  - Pneumonia aspiration [Fatal]
  - Renal failure [Fatal]
  - Urosepsis [Fatal]
  - Sinusitis [Fatal]
  - Dehydration [Fatal]
  - Hyperglycaemia [Fatal]

NARRATIVE: CASE EVENT DATE: 20150101
